FAERS Safety Report 13967309 (Version 1)
Quarter: 2017Q3

REPORT INFORMATION
  Report Type: Report from Study
  Country: JP (occurrence: JP)
  Receive Date: 20170914
  Receipt Date: 20170914
  Transmission Date: 20171128
  Serious: Yes (Other)
  Sender: FDA-Public Use
  Company Number: JP-VIFOR (INTERNATIONAL) INC.-VIT-2017-09513

PATIENT
  Age: 72 Year
  Sex: Male
  Weight: 78.8 kg

DRUGS (16)
  1. EPOGIN [Concomitant]
     Active Substance: ERYTHROPOIETIN
     Dosage: 3 MONTHS AFTER THE START OF VELPHORO ADMINISTRATION OR DISCONTINUATION.
     Dates: start: 20160906
  2. ALFACALCIDOL [Concomitant]
     Active Substance: ALFACALCIDOL
     Route: 048
  3. EPOGIN [Concomitant]
     Active Substance: ERYTHROPOIETIN
     Dosage: AT THE START OF VELPHORO ADMINISTRATION
     Dates: start: 20160608
  4. EPOGIN [Concomitant]
     Active Substance: ERYTHROPOIETIN
     Dosage: 2 MONTHS AFTER THE START OF VELPHORO ADMINISTRATION
     Dates: start: 20160807
  5. AVAPRO [Concomitant]
     Active Substance: IRBESARTAN
     Route: 048
  6. L-CARTIN FF [Concomitant]
     Active Substance: LEVOCARNITINE
  7. VELPHORO [Suspect]
     Active Substance: FERRIC OXYHYDROXIDE
     Indication: HYPERPHOSPHATAEMIA
     Route: 048
     Dates: start: 20160608
  8. EPOGIN [Concomitant]
     Active Substance: ERYTHROPOIETIN
     Dosage: 1 MONTH BEFORE THE START OF VELPHORO ADMINISTRATION
     Dates: start: 20160509
  9. NEOMALLERMIN [Concomitant]
     Active Substance: DEXCHLORPHENIRAMINE MALEATE
     Route: 048
  10. EPOGIN [Concomitant]
     Active Substance: ERYTHROPOIETIN
     Dosage: 1 MONTH AFTER THE START OF VELPHORO ADMINISTRATION
     Dates: start: 20160708
  11. LASIX [Concomitant]
     Active Substance: FUROSEMIDE
     Route: 048
  12. STRONGER NEO-MINOPHAGEN C [Concomitant]
     Active Substance: AMMONIUM GLYCYRRHIZATE\CYSTEINE HYDROCHLORIDE\GLYCINE
  13. REMITCH [Concomitant]
     Active Substance: NALFURAFINE HYDROCHLORIDE
     Route: 048
  14. EPOGIN [Concomitant]
     Active Substance: ERYTHROPOIETIN
  15. NORVASC [Concomitant]
     Active Substance: AMLODIPINE BESYLATE
     Route: 048
  16. CALCIUM CARBONATE. [Concomitant]
     Active Substance: CALCIUM CARBONATE
     Indication: HYPERPHOSPHATAEMIA
     Route: 048

REACTIONS (5)
  - Tinnitus [Not Recovered/Not Resolved]
  - Cellulitis [Recovered/Resolved]
  - Blood parathyroid hormone increased [Recovering/Resolving]
  - Shunt malfunction [Recovering/Resolving]
  - Prostatic specific antigen increased [Not Recovered/Not Resolved]

NARRATIVE: CASE EVENT DATE: 20160610
